FAERS Safety Report 17528782 (Version 2)
Quarter: 2020Q3

REPORT INFORMATION
  Report Type: Spontaneous
  Country: US (occurrence: US)
  Receive Date: 20200311
  Receipt Date: 20200716
  Transmission Date: 20201102
  Serious: Yes (Hospitalization, Other)
  Sender: FDA-Public Use
  Company Number: US-009507513-2003USA001461

PATIENT
  Age: 77 Year
  Sex: Female
  Weight: 49.89 kg

DRUGS (9)
  1. SINEMET [Suspect]
     Active Substance: CARBIDOPA\LEVODOPA
     Dosage: DAY DOSE 25/100 (UNIT NOT REPORTED)
     Dates: start: 20161006
  2. CARBIDOPA (+) LEVODOPA [Suspect]
     Active Substance: CARBIDOPA\LEVODOPA
     Indication: PARKINSON^S DISEASE
     Dosage: UNK
     Dates: start: 2018
  3. SINEMET CR [Suspect]
     Active Substance: CARBIDOPA\LEVODOPA
     Dosage: 25/100 (UNITS NOT PROVIDED), 2?3 TABLETS, EVERY 4 HOURS
     Route: 048
  4. SINEMET CR [Suspect]
     Active Substance: CARBIDOPA\LEVODOPA
     Indication: PARKINSON^S DISEASE
     Dosage: 25/100 (UNITS NOT PROVIDED), 2?3 TABLETS, EVERY 4 HOURS
     Route: 048
     Dates: start: 2018
  5. SINEMET [Suspect]
     Active Substance: CARBIDOPA\LEVODOPA
     Indication: PARKINSON^S DISEASE
     Dosage: STRENGHT: 25/100 (UNIT NOT REPORTED)
     Dates: start: 20150217
  6. AMANTADINE. [Concomitant]
     Active Substance: AMANTADINE HYDROCHLORIDE
     Dosage: UNK
  7. ELIQUIS [Concomitant]
     Active Substance: APIXABAN
     Dosage: UNK
  8. AZILECT [Concomitant]
     Active Substance: RASAGILINE MESYLATE
     Dosage: UNK
  9. SINEMET CR [Suspect]
     Active Substance: CARBIDOPA\LEVODOPA
     Dosage: 25/100 (UNITS NOT PROVIDED), ONLY NIGHT DOSE
     Route: 048
     Dates: start: 20161006

REACTIONS (12)
  - Multiple fractures [Recovering/Resolving]
  - Drug ineffective [Unknown]
  - Dry mouth [Unknown]
  - Product dose omission issue [Unknown]
  - Osteoporosis postmenopausal [Unknown]
  - Abdominal discomfort [Unknown]
  - Fall [Recovering/Resolving]
  - Clavicle fracture [Recovering/Resolving]
  - Fall [Recovering/Resolving]
  - Dysphagia [Unknown]
  - Hip fracture [Recovering/Resolving]
  - Fall [Recovering/Resolving]

NARRATIVE: CASE EVENT DATE: 20150729
